FAERS Safety Report 6689874-1 (Version None)
Quarter: 2010Q2

REPORT INFORMATION
  Report Type: 
  Country: None (occurrence: None)
  Receive Date: 20100421
  Receipt Date: 20100413
  Transmission Date: 20101027
  Serious: Yes (Hospitalization, Disabling)
  Sender: FDA-Public Use
  Company Number: FR-SANOFI-AVENTIS-2010SA021100

PATIENT
  Age: 80 Year
  Sex: Male

DRUGS (18)
  1. PROFENID [Interacting]
     Indication: SPINAL COMPRESSION FRACTURE
     Dosage: DOSE:50 MILLIGRAM(S)/MILLILITRE
     Route: 030
     Dates: start: 20091218, end: 20091222
  2. LOVENOX [Suspect]
     Route: 058
     Dates: start: 20091230, end: 20100106
  3. KARDEGIC [Interacting]
     Route: 048
     Dates: start: 20070101, end: 20091222
  4. KARDEGIC [Interacting]
     Route: 048
     Dates: start: 20091228, end: 20100106
  5. PREVISCAN [Interacting]
     Route: 048
     Dates: start: 20070101, end: 20091222
  6. COVERSYL /FRA/ [Concomitant]
     Route: 048
     Dates: start: 20070101, end: 20100102
  7. ALDACTONE [Concomitant]
     Route: 048
     Dates: start: 20070101, end: 20100102
  8. ADANCOR [Concomitant]
     Route: 048
     Dates: start: 20070101
  9. DISCOTRINE [Concomitant]
     Route: 062
     Dates: start: 20070101
  10. VASTAREL ^SERVIER^ [Concomitant]
     Route: 048
     Dates: start: 20070101
  11. CONTRAMAL [Concomitant]
     Dates: start: 20091226
  12. SUCRALFATE [Concomitant]
     Route: 048
     Dates: start: 20091226
  13. NEXIUM /UNK/ [Concomitant]
     Route: 048
     Dates: start: 20091226
  14. FORLAX [Concomitant]
     Route: 048
     Dates: start: 20091231
  15. OFLOXACIN [Concomitant]
     Route: 042
     Dates: start: 20100101
  16. CEFTRIAXONE [Concomitant]
     Route: 042
     Dates: start: 20100101
  17. GLICLAZIDE [Concomitant]
     Route: 048
     Dates: start: 20070101, end: 20091222
  18. LASIX [Concomitant]
     Route: 048
     Dates: start: 20070101, end: 20100106

REACTIONS (7)
  - ANAEMIA [None]
  - DRUG INTERACTION [None]
  - GASTRIC ULCER [None]
  - INJECTION SITE HAEMATOMA [None]
  - INTERNATIONAL NORMALISED RATIO INCREASED [None]
  - MEDICATION ERROR [None]
  - MELAENA [None]
